FAERS Safety Report 7008719-3 (Version None)
Quarter: 2010Q3

REPORT INFORMATION
  Report Type: 
  Country: None (occurrence: None)
  Receive Date: 20100921
  Receipt Date: 20100909
  Transmission Date: 20110219
  Serious: Yes (Other)
  Sender: FDA-Public Use
  Company Number: 2010SP048436

PATIENT
  Age: 33 Year
  Sex: Female
  Weight: 63 kg

DRUGS (3)
  1. CERAZETTE (DESOGESTREL  /00754001/) [Suspect]
     Indication: AMENORRHOEA
     Dosage: PO
     Route: 048
     Dates: start: 20100804
  2. CERAZETTE (DESOGESTREL  /00754001/) [Suspect]
     Indication: CONTRACEPTION
     Dosage: PO
     Route: 048
     Dates: start: 20100804
  3. CERAZETTE (DESOGESTREL  /00754001/) [Suspect]
     Indication: THROMBOSIS PROPHYLAXIS
     Dosage: PO
     Route: 048
     Dates: start: 20100804

REACTIONS (4)
  - LEIOMYOMA [None]
  - MENSTRUATION IRREGULAR [None]
  - METRORRHAGIA [None]
  - OFF LABEL USE [None]
